FAERS Safety Report 7603546-8 (Version None)
Quarter: 2011Q3

REPORT INFORMATION
  Report Type: 
  Country: None (occurrence: None)
  Receive Date: 20110712
  Receipt Date: 20110627
  Transmission Date: 20111222
  Serious: Yes (Hospitalization)
  Sender: FDA-Public Use
  Company Number: US-ENDO PHARMACEUTICALS INC.-ENDC20110037

PATIENT
  Sex: Male
  Weight: 72.64 kg

DRUGS (9)
  1. LIPITOR [Concomitant]
     Dosage: UNK
     Route: 065
  2. REYATAZ [Suspect]
     Indication: HIV INFECTION
     Dosage: UNK
     Route: 065
  3. OXYCODONE HCL AND ACETAMINOPHEN [Suspect]
     Indication: ARTHRALGIA
     Dosage: UNK
     Route: 048
     Dates: start: 20110512
  4. EPZICOM [Concomitant]
     Dosage: UNK
     Route: 065
  5. COUMADIN [Suspect]
     Indication: AORTIC VALVE REPLACEMENT
     Route: 048
  6. ASPIRIN [Concomitant]
     Dosage: UNK
     Route: 065
  7. TOPROL-XL [Concomitant]
     Dosage: UNK
     Route: 065
  8. TRAMADOL HCL [Suspect]
     Indication: ARTHRALGIA
     Dosage: 50 MG TO 100 MG
     Route: 048
     Dates: start: 20110510, end: 20110512
  9. ALLOPURINOL [Concomitant]
     Dosage: UNK
     Route: 065

REACTIONS (6)
  - BLOOD BILIRUBIN INCREASED [None]
  - INTRA-ABDOMINAL HAEMORRHAGE [None]
  - SPLENIC HAEMATOMA [None]
  - GASTROINTESTINAL HAEMORRHAGE [None]
  - DRUG INTERACTION [None]
  - INTERNATIONAL NORMALISED RATIO INCREASED [None]
